FAERS Safety Report 21522160 (Version 2)
Quarter: 2022Q4

REPORT INFORMATION
  Report Type: Report from Study
  Country: US (occurrence: US)
  Receive Date: 20221028
  Receipt Date: 20221220
  Transmission Date: 20230113
  Serious: No
  Sender: FDA-Public Use
  Company Number: US-ABBVIE-4131768

PATIENT
  Sex: Male

DRUGS (2)
  1. HUMIRA [Suspect]
     Active Substance: ADALIMUMAB
     Indication: Rheumatoid arthritis
     Dosage: CITRATE FREE
     Route: 058
  2. HUMIRA [Suspect]
     Active Substance: ADALIMUMAB

REACTIONS (6)
  - Product temperature excursion issue [Unknown]
  - Arthralgia [Unknown]
  - Device issue [Not Recovered/Not Resolved]
  - Therapeutic product effect incomplete [Unknown]
  - Joint swelling [Unknown]
  - Joint range of motion decreased [Unknown]
